FAERS Safety Report 19449199 (Version 1)
Quarter: 2021Q2

REPORT INFORMATION
  Report Type: Other
  Country: JP (occurrence: JP)
  Receive Date: 20210622
  Receipt Date: 20210622
  Transmission Date: 20210717
  Serious: Yes (Death)
  Sender: FDA-Public Use
  Company Number: JP-ROCHE-2850649

PATIENT
  Age: 41 Year
  Sex: Female

DRUGS (5)
  1. PACLITAXEL. [Concomitant]
     Active Substance: PACLITAXEL
     Indication: BREAST CANCER
     Route: 041
  2. PACLITAXEL. [Concomitant]
     Active Substance: PACLITAXEL
     Dosage: UNK UNK, ONCE/WEEK
     Route: 041
  3. PROPYLTHIOURACIL. [Concomitant]
     Active Substance: PROPYLTHIOURACIL
     Indication: BASEDOW^S DISEASE
     Route: 048
  4. AVASTIN [Suspect]
     Active Substance: BEVACIZUMAB
     Indication: BREAST CANCER
     Route: 041
  5. AVASTIN [Suspect]
     Active Substance: BEVACIZUMAB
     Route: 041

REACTIONS (2)
  - Disease progression [Fatal]
  - Off label use [Unknown]
